FAERS Safety Report 25923963 (Version 2)
Quarter: 2025Q4

REPORT INFORMATION
  Report Type: Spontaneous
  Country: US (occurrence: US)
  Receive Date: 20251015
  Receipt Date: 20251211
  Transmission Date: 20260119
  Serious: Yes (Other)
  Sender: GERON CORP
  Company Number: US-GERON CORPORATION-US-GER-25-000224

PATIENT
  Sex: Female

DRUGS (2)
  1. RYTELO [Suspect]
     Active Substance: IMETELSTAT SODIUM
     Indication: Product used for unknown indication
     Dosage: UNK MILLIGRAM/KILOGRAM, UNK
     Route: 042
     Dates: start: 2025, end: 2025
  2. RYTELO [Suspect]
     Active Substance: IMETELSTAT SODIUM
     Dosage: UNK MILLIGRAM/KILOGRAM, UNK, HALF DOSE
     Route: 042
     Dates: start: 2025

REACTIONS (3)
  - Neutrophil count decreased [Not Recovered/Not Resolved]
  - Drug ineffective [Unknown]
  - White blood cell count decreased [Unknown]

NARRATIVE: CASE EVENT DATE: 20250101
